FAERS Safety Report 8907982 (Version 3)
Quarter: 2012Q4

REPORT INFORMATION
  Report Type: 
  Country: US (occurrence: US)
  Receive Date: 20121114
  Receipt Date: 20121205
  Transmission Date: 20130627
  Serious: Yes (Death)
  Sender: FDA-Public Use
  Company Number: PHEH2012US022403

PATIENT
  Sex: Female

DRUGS (1)
  1. RECLAST [Suspect]
     Dosage: UNK
     Route: 042
     Dates: start: 20111212

REACTIONS (6)
  - Cardiac failure chronic [Fatal]
  - General physical condition abnormal [Unknown]
  - Carbon dioxide increased [Unknown]
  - Blood urea nitrogen/creatinine ratio increased [Unknown]
  - Blood sodium increased [Unknown]
  - Blood urea increased [Unknown]
